FAERS Safety Report 8080393-7 (Version None)
Quarter: 2012Q1

REPORT INFORMATION
  Report Type: 
  Country: None (occurrence: None)
  Receive Date: 20120130
  Receipt Date: 20120130
  Transmission Date: 20120608
  Serious: Yes (Life-Threatening, Hospitalization)
  Sender: FDA-Public Use
  Company Number: US-JNJFOC-20100404265

PATIENT
  Sex: Male
  Weight: 47.8 kg

DRUGS (33)
  1. REMICADE [Suspect]
     Route: 042
     Dates: start: 20090429, end: 20090429
  2. MORPHINE [Concomitant]
  3. SCOPOLAMINE [Concomitant]
  4. ATIVAN [Concomitant]
  5. ANTIBIOTICS [Concomitant]
     Indication: INFLAMMATORY BOWEL DISEASE
  6. IRON [Concomitant]
  7. COTRIM [Concomitant]
  8. VANCOMYCIN [Concomitant]
  9. CHLORHEXIDINE GLUCONATE [Concomitant]
  10. HUMIRA [Suspect]
     Dates: start: 20100324
  11. PEPTAMEN [Concomitant]
  12. CYTARABINE [Concomitant]
  13. NALBUPHINE [Concomitant]
  14. OXYCODONE HCL [Concomitant]
  15. HUMIRA [Suspect]
     Dates: start: 20091116
  16. METHOTREXATE [Suspect]
     Indication: CROHN'S DISEASE
  17. HUMIRA [Suspect]
     Indication: CROHN'S DISEASE
     Dates: start: 20090512
  18. OMEPRAZOLE [Concomitant]
  19. ALUMINUM HYDROXIDE [Concomitant]
  20. PREDNISONE TAB [Suspect]
     Indication: CROHN'S DISEASE
  21. BENADRYL [Concomitant]
  22. RIFAXIMIN [Concomitant]
  23. FLUCONAZOLE [Concomitant]
  24. ONDANSETRON HCL [Concomitant]
  25. AUGMENTIN '125' [Concomitant]
  26. REMICADE [Suspect]
     Indication: CROHN'S DISEASE
     Dosage: PRIOR TO REGISTRY
     Route: 042
     Dates: start: 20051103
  27. FOLIC ACID [Concomitant]
  28. ZANTAC [Concomitant]
  29. ZOSYN [Concomitant]
  30. CALCIUM CARBONATE [Concomitant]
  31. CHOLECALCIFEROL [Concomitant]
  32. IMODIUM [Concomitant]
  33. MIRALAX [Concomitant]

REACTIONS (5)
  - MULTI-ORGAN FAILURE [None]
  - MYELOID LEUKAEMIA [None]
  - ACUTE MONOCYTIC LEUKAEMIA [None]
  - TRANSFUSION REACTION [None]
  - SEPTIC SHOCK [None]
